FAERS Safety Report 8604554-0 (Version None)
Quarter: 2012Q3

REPORT INFORMATION
  Report Type: 
  Country: None (occurrence: None)
  Receive Date: 20120820
  Receipt Date: 20120810
  Transmission Date: 20120928
  Serious: Yes (Other)
  Sender: FDA-Public Use
  Company Number: US-BAYER-2012-082783

PATIENT
  Age: 37 Year
  Sex: Female

DRUGS (3)
  1. YASMIN [Suspect]
     Dosage: UNK
     Dates: start: 20020101, end: 20021001
  2. DROSPIRENONE AND ETHINYL ESTRADIOL [Suspect]
     Dosage: UNK
  3. YAZ [Suspect]
     Dosage: UNK
     Dates: start: 20110806, end: 20111017

REACTIONS (7)
  - FEAR OF DEATH [None]
  - EMOTIONAL DISTRESS [None]
  - INJURY [None]
  - NERVOUSNESS [None]
  - DEPRESSION [None]
  - CEREBROVASCULAR ACCIDENT [None]
  - PAIN [None]
